FAERS Safety Report 14601716 (Version 2)
Quarter: 2018Q1

REPORT INFORMATION
  Report Type: Spontaneous
  Country: AU (occurrence: AU)
  Receive Date: 20180306
  Receipt Date: 20180312
  Transmission Date: 20180509
  Serious: Yes (Other)
  Sender: FDA-Public Use
  Company Number: AU-ORION CORPORATION ORION PHARMA-ENTC2018-0070

PATIENT
  Sex: Male

DRUGS (2)
  1. IRON OXIDES [Suspect]
     Active Substance: FERRIC OXIDE RED
     Route: 065
  2. STALEVO [Suspect]
     Active Substance: CARBIDOPA\ENTACAPONE\LEVODOPA
     Dosage: STRENGTH: 200/50/200 MG
     Route: 065
     Dates: start: 2012

REACTIONS (6)
  - Constipation [Unknown]
  - Gastrointestinal carcinoma [Unknown]
  - Product use complaint [Unknown]
  - Reaction to excipient [Unknown]
  - Product quality issue [Unknown]
  - Foreign body in respiratory tract [Unknown]
